FAERS Safety Report 20210822 (Version 5)
Quarter: 2024Q4

REPORT INFORMATION
  Report Type: Report from Study
  Country: MX (occurrence: MX)
  Receive Date: 20211221
  Receipt Date: 20241001
  Transmission Date: 20250114
  Serious: Yes (Hospitalization, Other)
  Sender: NOVARTIS
  Company Number: MX-NOVARTISPH-NVSC2021MX290491

PATIENT
  Sex: Female
  Weight: 51 kg

DRUGS (8)
  1. TASIGNA [Suspect]
     Active Substance: NILOTINIB
     Indication: Chronic myeloid leukaemia
     Dosage: UNK(5 YERAS AGO)
     Route: 048
  2. TASIGNA [Suspect]
     Active Substance: NILOTINIB
     Dosage: 3 DOSAGE FORM (FREQUENCY 2 AND 1)
     Route: 048
  3. ACYCLOVIR [Concomitant]
     Active Substance: ACYCLOVIR
     Indication: Product used for unknown indication
     Dosage: UNK
     Route: 065
  4. PREDNISONE [Concomitant]
     Active Substance: PREDNISONE
     Indication: Product used for unknown indication
     Dosage: UNK
     Route: 065
  5. OMEPRAZOLE [Concomitant]
     Active Substance: OMEPRAZOLE
     Indication: Product used for unknown indication
     Dosage: 20 MG, QD
     Route: 065
  6. INSULIN NOS [Concomitant]
     Active Substance: INSULIN NOS
     Indication: Diabetes mellitus
     Dosage: 20 DOSAGE FORM (20 UNITS)
     Route: 065
  7. METFORMIN [Concomitant]
     Active Substance: METFORMIN HYDROCHLORIDE
     Indication: Type 2 diabetes mellitus
     Dosage: 80 MG (IN THE MORNING AND AT NIGHT))
     Route: 065
  8. METFORMIN [Concomitant]
     Active Substance: METFORMIN HYDROCHLORIDE
     Dosage: 1 DOSAGE FORM (850 MG), BID (IN THE MORNING AND AT NIGHT)
     Route: 065

REACTIONS (16)
  - Urinary tract infection [Recovering/Resolving]
  - Graft versus host disease [Unknown]
  - Vomiting [Unknown]
  - Nausea [Unknown]
  - Nervousness [Unknown]
  - Stressed eating [Unknown]
  - Blood glucose increased [Unknown]
  - Diarrhoea [Unknown]
  - Increased appetite [Unknown]
  - Abdominal pain upper [Unknown]
  - Taste disorder [Unknown]
  - Weight decreased [Unknown]
  - Abdominal discomfort [Unknown]
  - Headache [Unknown]
  - Visual impairment [Unknown]
  - Inappropriate schedule of product administration [Unknown]
